FAERS Safety Report 21161415 (Version 1)
Quarter: 2022Q3

REPORT INFORMATION
  Report Type: Spontaneous
  Country: US (occurrence: US)
  Receive Date: 20220802
  Receipt Date: 20220802
  Transmission Date: 20221027
  Serious: No
  Sender: FDA-Public Use
  Company Number: CID000000000026549

PATIENT
  Age: 38 Year
  Sex: Female

DRUGS (1)
  1. LESSINA [Suspect]
     Active Substance: ETHINYL ESTRADIOL\LEVONORGESTREL
     Indication: Amenorrhoea
     Route: 065
     Dates: start: 2007

REACTIONS (5)
  - Product use in unapproved indication [Unknown]
  - Sinusitis [Not Recovered/Not Resolved]
  - Migraine [Not Recovered/Not Resolved]
  - Drug hypersensitivity [Not Recovered/Not Resolved]
  - Swelling [Not Recovered/Not Resolved]
